FAERS Safety Report 6232501-8 (Version None)
Quarter: 2009Q2

REPORT INFORMATION
  Report Type: 
  Country: None (occurrence: None)
  Receive Date: 20090617
  Receipt Date: 20090604
  Transmission Date: 20091009
  Serious: Yes (Other)
  Sender: FDA-Public Use
  Company Number: US-BAYER-200922639NA

PATIENT

DRUGS (2)
  1. AVELOX [Suspect]
     Indication: DRUG USE FOR UNKNOWN INDICATION
     Dates: start: 20081101
  2. LEVAQUIN [Suspect]
     Indication: DRUG USE FOR UNKNOWN INDICATION
     Dates: start: 20081101

REACTIONS (15)
  - ALOPECIA [None]
  - BLADDER SPASM [None]
  - DIZZINESS [None]
  - EAR DISCOMFORT [None]
  - EAR PAIN [None]
  - GASTROINTESTINAL PAIN [None]
  - JOINT CREPITATION [None]
  - LYMPHADENOPATHY [None]
  - NEUROPATHY PERIPHERAL [None]
  - PARALYSIS [None]
  - TENDON INJURY [None]
  - TENDONITIS [None]
  - VASCULITIS [None]
  - VISUAL IMPAIRMENT [None]
  - WEIGHT DECREASED [None]
